FAERS Safety Report 4320972-3 (Version None)
Quarter: 2004Q1

REPORT INFORMATION
  Report Type: 
  Country: None (occurrence: None)
  Receive Date: 20040322
  Receipt Date: 20040322
  Transmission Date: 20041129
  Serious: Yes (Other)
  Sender: FDA-Public Use
  Company Number: None

PATIENT
  Age: 37 Year
  Sex: Female
  Weight: 58.9676 kg

DRUGS (3)
  1. NASALCROM [Suspect]
     Indication: RHINITIS ALLERGIC
     Dosage: 1-4 TIMES DAILY NASAL
     Route: 045
     Dates: start: 20040307, end: 20040320
  2. CLARITIN [Concomitant]
  3. ALLEGRA [Concomitant]

REACTIONS (1)
  - ANOSMIA [None]
